APPROVED DRUG PRODUCT: FLUOXETINE HYDROCHLORIDE
Active Ingredient: FLUOXETINE HYDROCHLORIDE
Strength: EQ 90MG BASE
Dosage Form/Route: CAPSULE, DELAYED REL PELLETS;ORAL
Application: A078572 | Product #001
Applicant: DR REDDYS LABORATORIES LTD
Approved: Mar 22, 2010 | RLD: No | RS: Yes | Type: RX